FAERS Safety Report 4281702-7 (Version None)
Quarter: 2004Q1

REPORT INFORMATION
  Report Type: 
  Country: None (occurrence: None)
  Receive Date: 20040129
  Receipt Date: 20040129
  Transmission Date: 20041129
  Serious: Yes (Hospitalization)
  Sender: FDA-Public Use
  Company Number: None

PATIENT
  Age: 9 Year
  Sex: Male
  Weight: 29.5 kg

DRUGS (8)
  1. ONCASPAR [Suspect]
     Indication: ACUTE LYMPHOCYTIC LEUKAEMIA
     Dosage: 2500 IU  X 1  IM
     Route: 030
     Dates: start: 20031215
  2. DEXAMETHASONE [Suspect]
     Indication: ACUTE LYMPHOCYTIC LEUKAEMIA
     Dosage: 3.5MG QAM PO; 3MG QPM PO
     Route: 048
     Dates: start: 20031215, end: 20040108
  3. GRANISETRON [Concomitant]
  4. IT CYTARABINE [Concomitant]
  5. VINCRISTINE [Concomitant]
  6. ALLOPURINOL [Concomitant]
  7. NIFEDIPINE [Concomitant]
  8. METHOTREXATE [Concomitant]

REACTIONS (5)
  - CEREBRAL INFARCTION [None]
  - LACUNAR INFARCTION [None]
  - MUSCULAR WEAKNESS [None]
  - PAIN IN EXTREMITY [None]
  - PARAESTHESIA [None]
